FAERS Safety Report 18822276 (Version 8)
Quarter: 2021Q4

REPORT INFORMATION
  Report Type: Report from Study
  Country: US (occurrence: US)
  Receive Date: 20210202
  Receipt Date: 20211227
  Transmission Date: 20220303
  Serious: Yes (Other)
  Sender: FDA-Public Use
  Company Number: US-NOVARTISPH-NVSC2021US017300

PATIENT
  Sex: Male

DRUGS (2)
  1. ENTRESTO [Suspect]
     Active Substance: SACUBITRIL\VALSARTAN
     Indication: Product used for unknown indication
     Dosage: 1 DF, BID (97/103 MG)
     Route: 048
     Dates: start: 202011
  2. FUROSEMIDE [Concomitant]
     Active Substance: FUROSEMIDE
     Indication: Product used for unknown indication
     Dosage: UNK
     Route: 065

REACTIONS (17)
  - Cataract [Not Recovered/Not Resolved]
  - Ejection fraction decreased [Not Recovered/Not Resolved]
  - Weight fluctuation [Unknown]
  - Bowel movement irregularity [Unknown]
  - Feeling cold [Unknown]
  - Hyperhidrosis [Recovered/Resolved]
  - Chills [Recovered/Resolved]
  - Pain [Recovered/Resolved]
  - Road traffic accident [Recovering/Resolving]
  - Dehydration [Unknown]
  - Memory impairment [Unknown]
  - Thyroid disorder [Unknown]
  - Temperature intolerance [Unknown]
  - Infection [Unknown]
  - Hypersensitivity [Unknown]
  - Dizziness [Not Recovered/Not Resolved]
  - Fatigue [Unknown]
